FAERS Safety Report 7508344-1 (Version None)
Quarter: 2011Q2

REPORT INFORMATION
  Report Type: 
  Country: None (occurrence: None)
  Receive Date: 20110527
  Receipt Date: 20110519
  Transmission Date: 20111010
  Serious: Yes (Other)
  Sender: FDA-Public Use
  Company Number: US-PFIZER INC-2011110365

PATIENT
  Sex: Male
  Weight: 83 kg

DRUGS (1)
  1. XALATAN [Suspect]
     Indication: INTRAOCULAR PRESSURE INCREASED
     Dosage: 1 DROP, EACH EYE, 1X/DAY
     Route: 047
     Dates: start: 20110301

REACTIONS (1)
  - VISION BLURRED [None]
